FAERS Safety Report 6070575-8 (Version None)
Quarter: 2009Q1

REPORT INFORMATION
  Report Type: 
  Country: None (occurrence: None)
  Receive Date: 20090209
  Receipt Date: 20090128
  Transmission Date: 20090719
  Serious: Yes (Other)
  Sender: FDA-Public Use
  Company Number: US-PFIZER INC-2008046471

PATIENT
  Sex: Female
  Weight: 66.2 kg

DRUGS (5)
  1. CHANTIX [Suspect]
     Indication: SMOKING CESSATION THERAPY
     Route: 048
     Dates: start: 20080520, end: 20080817
  2. KLONOPIN [Concomitant]
     Route: 048
  3. ZYPREXA [Concomitant]
     Route: 048
  4. EFFEXOR [Concomitant]
     Route: 048
  5. QUINAPRIL [Concomitant]

REACTIONS (2)
  - BIPOLAR I DISORDER [None]
  - PARANOIA [None]
